FAERS Safety Report 10466130 (Version 2)
Quarter: 2014Q4

REPORT INFORMATION
  Report Type: Spontaneous
  Country: PL (occurrence: PL)
  Receive Date: 20140922
  Receipt Date: 20141111
  Transmission Date: 20150528
  Serious: Yes (Death, Hospitalization)
  Sender: FDA-Public Use
  Company Number: PL-AUROBINDO-AUR-APL-2014-09993

PATIENT
  Age: 34 Year
  Sex: Female

DRUGS (3)
  1. PHENOTHIAZINE [Concomitant]
     Active Substance: PHENOTHIAZINE
     Indication: PRODUCT USED FOR UNKNOWN INDICATION
     Route: 065
  2. KETOPROFEN. [Concomitant]
     Active Substance: KETOPROFEN
     Indication: PRODUCT USED FOR UNKNOWN INDICATION
     Dosage: UNK
     Route: 065
  3. METFORMIN AUROBINDO FILM-COATED TABLETS 500MG [Suspect]
     Active Substance: METFORMIN HYDROCHLORIDE
     Indication: PRODUCT USED FOR UNKNOWN INDICATION
     Dosage: UNK
     Route: 048

REACTIONS (17)
  - International normalised ratio increased [Unknown]
  - Blood pressure decreased [Unknown]
  - Blood lactic acid increased [Unknown]
  - Circulatory collapse [Fatal]
  - Liver injury [Unknown]
  - Hypoglycaemia [Unknown]
  - Metabolic acidosis [Unknown]
  - Pancreatic injury [Unknown]
  - Prothrombin level decreased [Unknown]
  - Hepatic failure [Fatal]
  - Respiratory failure [Fatal]
  - Pancreatic insufficiency [Fatal]
  - Suicide attempt [Fatal]
  - Amylase increased [Unknown]
  - Hepatorenal syndrome [Fatal]
  - Toxicity to various agents [Fatal]
  - Seizure [Unknown]
